FAERS Safety Report 11350850 (Version 1)
Quarter: 2015Q3

REPORT INFORMATION
  Report Type: Spontaneous
  Country: US (occurrence: US)
  Receive Date: 20150807
  Receipt Date: 20150807
  Transmission Date: 20151125
  Serious: No
  Sender: FDA-Public Use
  Company Number: US-JNJFOC-20150616651

PATIENT
  Sex: Male
  Weight: 90.72 kg

DRUGS (8)
  1. HYPROMELLOSE [Concomitant]
     Active Substance: HYPROMELLOSES
     Indication: COLITIS
     Dosage: 1 DROP
     Route: 047
  2. CHOLESTEROL [Concomitant]
     Active Substance: CHOLESTEROL
     Indication: BLOOD CHOLESTEROL
     Dosage: 1 PILL A DAY
     Route: 065
  3. OTHER OPHTHALMOLOGICALS [Concomitant]
     Indication: EYE DISORDER
     Dosage: AS NEEDED
     Route: 047
  4. REFRESH [Concomitant]
     Active Substance: UNSPECIFIED INGREDIENT
     Indication: UNEVALUABLE EVENT
     Dosage: AS NEEDED
     Route: 047
  5. VISINE A [Suspect]
     Active Substance: NAPHAZOLINE HYDROCHLORIDE\PHENIRAMINE MALEATE
     Indication: COLITIS
     Dosage: 1 DROP 1-2 X A DAY
     Route: 047
  6. A MULTIVITAMIN [Concomitant]
     Indication: ROUTINE HEALTH MAINTENANCE
     Dosage: 1 PILL A DAY
     Route: 065
  7. FLUOROMETHOLONE. [Concomitant]
     Active Substance: FLUOROMETHOLONE
     Indication: COLITIS
     Dosage: 1 DROP
     Route: 047
  8. RETAINE [Concomitant]
     Indication: UNEVALUABLE EVENT
     Dosage: AS NEEDED
     Route: 047

REACTIONS (3)
  - Therapeutic response unexpected [Unknown]
  - Expired product administered [Unknown]
  - Off label use [Unknown]
